FAERS Safety Report 24064232 (Version 1)
Quarter: 2024Q3

REPORT INFORMATION
  Report Type: Spontaneous
  Country: IT (occurrence: IT)
  Receive Date: 20240709
  Receipt Date: 20240709
  Transmission Date: 20241016
  Serious: Yes (Other)
  Sender: HIKMA
  Company Number: None

PATIENT
  Age: 81 Year
  Sex: Male

DRUGS (1)
  1. GEMCITABINE [Suspect]
     Active Substance: GEMCITABINE
     Indication: Cholangiocarcinoma
     Dosage: 1419 MILLIGRAM
     Route: 042
     Dates: start: 20220317, end: 20220317

REACTIONS (6)
  - Dysphonia [Recovering/Resolving]
  - Dysgeusia [Recovering/Resolving]
  - Blood alkaline phosphatase increased [Recovering/Resolving]
  - Off label use [Recovering/Resolving]
  - Leukocytosis [Recovering/Resolving]
  - Gamma-glutamyltransferase increased [Recovering/Resolving]

NARRATIVE: CASE EVENT DATE: 20220317
